FAERS Safety Report 20367806 (Version 3)
Quarter: 2022Q2

REPORT INFORMATION
  Report Type: Report from Study
  Country: CA (occurrence: CA)
  Receive Date: 20220124
  Receipt Date: 20220428
  Transmission Date: 20220721
  Serious: Yes (Hospitalization, Other)
  Sender: FDA-Public Use
  Company Number: CA-ABBVIE-22K-028-4244367-00

PATIENT
  Sex: Female

DRUGS (5)
  1. HUMIRA [Suspect]
     Active Substance: ADALIMUMAB
     Indication: Rheumatoid arthritis
     Route: 058
     Dates: start: 20120711, end: 202112
  2. HUMIRA [Suspect]
     Active Substance: ADALIMUMAB
     Route: 058
     Dates: start: 20220425
  3. COVID-19 VACCINE [Concomitant]
     Indication: COVID-19 immunisation
     Dosage: FIRST DOSE
     Route: 030
     Dates: start: 2021, end: 2021
  4. COVID-19 VACCINE [Concomitant]
     Dosage: SECOND DOSE
     Route: 030
     Dates: start: 2021, end: 2021
  5. COVID-19 VACCINE [Concomitant]
     Dosage: THIRD DOSE
     Route: 030
     Dates: start: 20220118, end: 20220118

REACTIONS (5)
  - Blindness [Unknown]
  - Arterial therapeutic procedure [Recovering/Resolving]
  - Dyspnoea exertional [Unknown]
  - Macular degeneration [Unknown]
  - Rheumatoid arthritis [Unknown]
